FAERS Safety Report 9145880 (Version 1)
Quarter: 2013Q1

REPORT INFORMATION
  Report Type: Spontaneous
  Country: PL (occurrence: PL)
  Receive Date: 20130307
  Receipt Date: 20130307
  Transmission Date: 20140127
  Serious: Yes (Hospitalization)
  Sender: FDA-Public Use
  Company Number: PL-UCBSA-079846

PATIENT
  Age: 67 Year
  Sex: Female
  Weight: 91 kg

DRUGS (3)
  1. CIMZIA [Suspect]
     Indication: RHEUMATOID ARTHRITIS
     Dosage: 16PACKAGES=32 SYRINGES,1 ML
     Route: 058
     Dates: start: 201111, end: 201302
  2. METOTREKSAT [Concomitant]
     Route: 048
  3. ENCORTON [Concomitant]
     Route: 048

REACTIONS (2)
  - Encephalitis viral [Unknown]
  - Loss of consciousness [Recovering/Resolving]
